FAERS Safety Report 5457517-0 (Version None)
Quarter: 2007Q3

REPORT INFORMATION
  Report Type: 
  Country: None (occurrence: None)
  Receive Date: 20070918
  Receipt Date: 20070906
  Transmission Date: 20080115
  Serious: Yes (Other)
  Sender: FDA-Public Use
  Company Number: US-PFIZER INC-2007074914

PATIENT
  Sex: Female
  Weight: 62.3 kg

DRUGS (10)
  1. CHANTIX [Suspect]
     Indication: SMOKING CESSATION THERAPY
  2. ANALGESICS [Concomitant]
  3. THYROID TAB [Concomitant]
  4. ANTIHYPERTENSIVES [Concomitant]
  5. ANTIDEPRESSANTS [Concomitant]
  6. ESTROGENS [Concomitant]
  7. ANTIEPILEPTICS [Concomitant]
  8. OTHER HYPNOTICS AND SEDATIVES [Concomitant]
  9. ALL OTHER THERAPEUTIC PRODUCTS [Concomitant]
  10. ADVAIR DISKUS 100/50 [Concomitant]

REACTIONS (2)
  - NAUSEA [None]
  - WEIGHT DECREASED [None]
